FAERS Safety Report 9669560 (Version 2)
Quarter: 2013Q4

REPORT INFORMATION
  Report Type: Spontaneous
  Country: US (occurrence: US)
  Receive Date: 20131105
  Receipt Date: 20131213
  Transmission Date: 20140711
  Serious: No
  Sender: FDA-Public Use
  Company Number: US-PFIZER INC-2013315236

PATIENT
  Age: 86 Year
  Sex: Female
  Weight: 61.22 kg

DRUGS (7)
  1. LYRICA [Suspect]
     Indication: DIABETIC NEUROPATHY
     Dosage: 75 MG, 2X/DAY
     Route: 048
     Dates: start: 20131015, end: 20131101
  2. METFORMIN [Concomitant]
     Dosage: 500 MG, 1X/DAY
  3. METANX [Concomitant]
     Dosage: UNK, 2X/DAY
  4. SIMVASTATIN [Concomitant]
     Dosage: UNK, 1X/DAY
  5. LEVOTHYROXINE [Concomitant]
     Indication: HYPOTHYROIDISM
     Dosage: 0.025 MG, 2X/DAY
  6. ASPIRIN [Concomitant]
     Indication: DIABETIC COMPLICATION
     Dosage: 81 MG, 1X/DAY
  7. LISINOPRIL [Concomitant]
     Indication: DIABETIC COMPLICATION
     Dosage: 2.5 MG, UNK

REACTIONS (5)
  - Dizziness [Recovered/Resolved]
  - Impaired driving ability [Not Recovered/Not Resolved]
  - Balance disorder [Not Recovered/Not Resolved]
  - Feeling drunk [Not Recovered/Not Resolved]
  - Activities of daily living impaired [Not Recovered/Not Resolved]
